FAERS Safety Report 4520395-8 (Version None)
Quarter: 2004Q4

REPORT INFORMATION
  Report Type: 
  Country: None (occurrence: None)
  Receive Date: 20041203
  Receipt Date: 20041122
  Transmission Date: 20050328
  Serious: Yes (Other)
  Sender: FDA-Public Use
  Company Number: GB-JNJFOC-20041106270

PATIENT
  Age: 2 Year
  Sex: Female
  Weight: 11.3 kg

DRUGS (1)
  1. IBUPROFEN [Suspect]
     Dosage: 5 ML, 2 IN 1 TOTAL, ORAL
     Route: 048
     Dates: start: 20041103, end: 20041103

REACTIONS (2)
  - LOCAL SWELLING [None]
  - OEDEMA MOUTH [None]
